FAERS Safety Report 13983225 (Version 1)
Quarter: 2017Q3

REPORT INFORMATION
  Report Type: Spontaneous
  Country: US (occurrence: US)
  Receive Date: 20170918
  Receipt Date: 20170918
  Transmission Date: 20171128
  Serious: Yes (Other)
  Sender: FDA-Public Use
  Company Number: None

PATIENT
  Age: 78 Year
  Sex: Female
  Weight: 67.5 kg

DRUGS (11)
  1. VITAMIN C [Concomitant]
     Active Substance: ASCORBIC ACID
  2. VITAMIN B12 [Suspect]
     Active Substance: CYANOCOBALAMIN
  3. FOLIC ACID. [Concomitant]
     Active Substance: FOLIC ACID
  4. LUTEIN [Concomitant]
     Active Substance: LUTEIN
  5. CALCIUM CITRATE [Concomitant]
     Active Substance: CALCIUM CITRATE
  6. VITAMIN D [Concomitant]
     Active Substance: CHOLECALCIFEROL
  7. VENTOLIN HFA [Suspect]
     Active Substance: ALBUTEROL SULFATE
     Indication: DYSPNOEA
     Dosage: ?          QUANTITY:200 INHALATION(S);?
     Route: 055
     Dates: start: 20170916, end: 20170916
  8. FISH OIL [Concomitant]
     Active Substance: FISH OIL
  9. FLECAINIDE [Concomitant]
     Active Substance: FLECAINIDE
  10. ZINC. [Concomitant]
     Active Substance: ZINC
  11. MAGNESIUM [Concomitant]
     Active Substance: MAGNESIUM

REACTIONS (6)
  - Accidental overdose [None]
  - Oropharyngeal pain [None]
  - Wrong technique in product usage process [None]
  - Therapy non-responder [None]
  - Mouth haemorrhage [None]
  - Nervousness [None]

NARRATIVE: CASE EVENT DATE: 20170916
